FAERS Safety Report 5304738-3 (Version None)
Quarter: 2007Q2

REPORT INFORMATION
  Report Type: 
  Country: None (occurrence: None)
  Receive Date: 20070423
  Receipt Date: 20070418
  Transmission Date: 20071010
  Serious: Yes (Other)
  Sender: FDA-Public Use
  Company Number: NLWYE775926FEB07

PATIENT
  Sex: Female

DRUGS (2)
  1. EFFEXOR XR [Suspect]
     Indication: DEPRESSION
     Route: 048
     Dates: start: 20000201
  2. EFFEXOR XR [Suspect]
     Indication: ANXIETY
     Route: 048
     Dates: end: 20070101

REACTIONS (8)
  - ANORGASMIA [None]
  - BULIMIA NERVOSA [None]
  - COMPULSIONS [None]
  - DISTURBANCE IN ATTENTION [None]
  - DIZZINESS [None]
  - DRUG WITHDRAWAL SYNDROME [None]
  - FLAT AFFECT [None]
  - SELF MUTILATION [None]
